FAERS Safety Report 19355704 (Version 1)
Quarter: 2021Q2

REPORT INFORMATION
  Report Type: Spontaneous
  Country: US (occurrence: US)
  Receive Date: 20210602
  Receipt Date: 20210602
  Transmission Date: 20210717
  Serious: No
  Sender: FDA-Public Use
  Company Number: US-ORGANON-O2105USA002043

PATIENT

DRUGS (2)
  1. STERILE WATER [Suspect]
     Active Substance: WATER
     Dosage: UNK
     Route: 058
  2. PREGNYL [Suspect]
     Active Substance: CHORIOGONADOTROPIN ALFA
     Dosage: UNK
     Route: 058

REACTIONS (3)
  - Product prescribing issue [Unknown]
  - Incorrect route of product administration [Unknown]
  - No adverse event [Unknown]

NARRATIVE: CASE EVENT DATE: 2020
